FAERS Safety Report 12225968 (Version 1)
Quarter: 2016Q1

REPORT INFORMATION
  Report Type: Spontaneous
  Country: FR (occurrence: FR)
  Receive Date: 20160331
  Receipt Date: 20160331
  Transmission Date: 20160526
  Serious: Yes (Hospitalization)
  Sender: FDA-Public Use
  Company Number: FR-ASTRAZENECA-2016SE33406

PATIENT
  Age: 23920 Day
  Sex: Female

DRUGS (11)
  1. HYTACAND [Suspect]
     Active Substance: CANDESARTAN CILEXETIL\HYDROCHLOROTHIAZIDE
     Indication: HYPERTENSION
     Dosage: 8MG/12.5MG ONCE A DAY
     Route: 048
     Dates: end: 20160222
  2. GLICLAZIDE [Suspect]
     Active Substance: GLICLAZIDE
     Indication: TYPE 2 DIABETES MELLITUS
     Route: 048
     Dates: end: 20160222
  3. EFFERALGAN CODEINE [Concomitant]
     Active Substance: ACETAMINOPHEN\CODEINE PHOSPHATE
  4. PYOSTACINE [Interacting]
     Active Substance: PRISTINAMYCIN
     Route: 048
     Dates: start: 20160112, end: 20160227
  5. EUCREAS [Suspect]
     Active Substance: METFORMIN HYDROCHLORIDE\VILDAGLIPTIN
     Dosage: 50MG/1000MG ONCE A DAY
     Route: 048
     Dates: end: 20160222
  6. FUSIDIC ACID [Suspect]
     Active Substance: FUSIDIC ACID
     Route: 003
     Dates: start: 20160112
  7. AFINITOR [Interacting]
     Active Substance: EVEROLIMUS
     Indication: BREAST CANCER
     Route: 048
     Dates: start: 201301, end: 20160222
  8. THERALENE [Concomitant]
     Active Substance: TRIMEPRAZINE
     Dates: end: 20160222
  9. THERALENE [Concomitant]
     Active Substance: TRIMEPRAZINE
     Dates: start: 20160228
  10. LYTOS [Suspect]
     Active Substance: CLODRONATE DISODIUM
     Route: 048
     Dates: end: 20160222
  11. ARMORACIA RUSTICANA [Concomitant]

REACTIONS (7)
  - Encephalopathy [Recovered/Resolved]
  - Eczema [Unknown]
  - Acute kidney injury [Recovering/Resolving]
  - Impetigo [Unknown]
  - Folliculitis [Unknown]
  - Diarrhoea [Unknown]
  - Renal tubular necrosis [Recovering/Resolving]

NARRATIVE: CASE EVENT DATE: 201601
